FAERS Safety Report 14750672 (Version 3)
Quarter: 2018Q2

REPORT INFORMATION
  Report Type: Spontaneous
  Country: US (occurrence: US)
  Receive Date: 20180412
  Receipt Date: 20180621
  Transmission Date: 20180711
  Serious: Yes (Hospitalization)
  Sender: FDA-Public Use
  Company Number: US-PFIZER INC-2018146636

PATIENT
  Age: 58 Year
  Sex: Female

DRUGS (1)
  1. PROTONIX [Suspect]
     Active Substance: PANTOPRAZOLE SODIUM
     Indication: GASTROOESOPHAGEAL REFLUX DISEASE
     Dosage: UNK, 1X/DAY (40 1 X DAY)
     Dates: start: 20140117, end: 20140315

REACTIONS (10)
  - Depression [Recovered/Resolved]
  - Weight decreased [Recovered/Resolved]
  - Diplopia [Recovered/Resolved]
  - Anxiety [Recovered/Resolved]
  - Panic attack [Recovered/Resolved]
  - Vision blurred [Unknown]
  - Toothache [Recovered/Resolved]
  - Arthralgia [Recovered/Resolved]
  - Decreased appetite [Unknown]
  - Insomnia [Unknown]

NARRATIVE: CASE EVENT DATE: 20140220
